FAERS Safety Report 15884492 (Version 1)
Quarter: 2019Q1

REPORT INFORMATION
  Report Type: Spontaneous
  Country: US (occurrence: US)
  Receive Date: 20190129
  Receipt Date: 20190129
  Transmission Date: 20190417
  Serious: Yes (Hospitalization)
  Sender: FDA-Public Use
  Company Number: None

PATIENT
  Sex: Female

DRUGS (23)
  1. PROVENTIL [Concomitant]
     Active Substance: ALBUTEROL
  2. AVELOX [Concomitant]
     Active Substance: MOXIFLOXACIN HYDROCHLORIDE
  3. FLOVENT [Concomitant]
     Active Substance: FLUTICASONE PROPIONATE
  4. KETOROLAC [Concomitant]
     Active Substance: KETOROLAC\KETOROLAC TROMETHAMINE
  5. LIPITOR [Concomitant]
     Active Substance: ATORVASTATIN CALCIUM
  6. HALOPERIDOL. [Concomitant]
     Active Substance: HALOPERIDOL
  7. HYDROXYZ [Concomitant]
     Active Substance: HYDROXYZINE HYDROCHLORIDE
  8. IPRATROPIUM [Concomitant]
     Active Substance: IPRATROPIUM
  9. RESTASIS [Concomitant]
     Active Substance: CYCLOSPORINE
  10. PANTOPRAZOLE [Concomitant]
     Active Substance: PANTOPRAZOLE
  11. CLONAZEPAM. [Concomitant]
     Active Substance: CLONAZEPAM
  12. EPIPEN [Concomitant]
     Active Substance: EPINEPHRINE
  13. SOOLANTRA [Concomitant]
     Active Substance: IVERMECTIN
  14. TOPAMAX [Concomitant]
     Active Substance: TOPIRAMATE
  15. XYZAL [Concomitant]
     Active Substance: LEVOCETIRIZINE DIHYDROCHLORIDE
  16. NIFEDIPINE. [Concomitant]
     Active Substance: NIFEDIPINE
  17. PREDNISONE. [Concomitant]
     Active Substance: PREDNISONE
  18. BOTOX [Suspect]
     Active Substance: ONABOTULINUMTOXINA
     Indication: MIGRAINE
     Dosage: 200 IU Q 84 DAYS; INTRAMUSCULAR?
     Route: 030
     Dates: start: 20151201
  19. DYMISTA [Concomitant]
     Active Substance: AZELASTINE HYDROCHLORIDE\FLUTICASONE PROPIONATE
  20. MECLIZINE [Concomitant]
     Active Substance: MECLIZINE HYDROCHLORIDE
  21. MUPIROCIN. [Concomitant]
     Active Substance: MUPIROCIN
  22. SYNTHROID [Concomitant]
     Active Substance: LEVOTHYROXINE SODIUM
  23. TRAZODONE [Concomitant]
     Active Substance: TRAZODONE HYDROCHLORIDE

REACTIONS (1)
  - Death [None]
